FAERS Safety Report 18087249 (Version 1)
Quarter: 2020Q3

REPORT INFORMATION
  Report Type: Spontaneous
  Country: IT (occurrence: IT)
  Receive Date: 20200729
  Receipt Date: 20200729
  Transmission Date: 20201103
  Serious: Yes (Death, Hospitalization, Other)
  Sender: FDA-Public Use
  Company Number: IT-ASTRAZENECA-2020SE84667

PATIENT
  Age: 19310 Day
  Sex: Female

DRUGS (4)
  1. LEVOTUSS [Concomitant]
     Active Substance: LEVODROPROPIZINE
     Dosage: 10 DROPS REPEATABLE 3 TIMES A DAY
  2. OSIMERTINIB. [Suspect]
     Active Substance: OSIMERTINIB
     Dosage: 80.0MG UNKNOWN
     Route: 048
  3. XANAX [Concomitant]
     Active Substance: ALPRAZOLAM
     Dosage: 0.25 ONE TABLET ON THE EVENING
  4. DEXAMETHASONE. [Concomitant]
     Active Substance: DEXAMETHASONE
     Dosage: 4 MG 1 VIAL ORALLY OR 64 DROPS 8 HOURS ON A FULL STOMACH

REACTIONS (7)
  - Pulmonary embolism [Unknown]
  - Intra-abdominal haematoma [Unknown]
  - Lung disorder [Not Recovered/Not Resolved]
  - Acute respiratory failure [Fatal]
  - Thrombocytopenia [Fatal]
  - Haematoma [Unknown]
  - SARS-CoV-2 test negative [Unknown]

NARRATIVE: CASE EVENT DATE: 20200629
